FAERS Safety Report 22776578 (Version 2)
Quarter: 2025Q1

REPORT INFORMATION
  Report Type: Spontaneous
  Country: JP (occurrence: JP)
  Receive Date: 20230802
  Receipt Date: 20250103
  Transmission Date: 20250409
  Serious: Yes (Other)
  Sender: CELLTRION
  Company Number: JP-CELLTRION INC.-2020JP019503

PATIENT

DRUGS (24)
  1. INFLIXIMAB [Suspect]
     Active Substance: INFLIXIMAB
     Indication: Colitis ulcerative
     Route: 041
     Dates: start: 20181107, end: 20181107
  2. INFLIXIMAB [Suspect]
     Active Substance: INFLIXIMAB
     Route: 041
     Dates: start: 20190115, end: 20190115
  3. INFLIXIMAB [Suspect]
     Active Substance: INFLIXIMAB
     Route: 041
     Dates: start: 20190312, end: 20190312
  4. INFLIXIMAB [Suspect]
     Active Substance: INFLIXIMAB
     Route: 041
     Dates: start: 20190506, end: 20190506
  5. INFLIXIMAB [Suspect]
     Active Substance: INFLIXIMAB
     Route: 041
     Dates: start: 20191028, end: 20191028
  6. INFLIXIMAB [Suspect]
     Active Substance: INFLIXIMAB
     Route: 041
     Dates: start: 20201130, end: 20201130
  7. INFLIXIMAB [Suspect]
     Active Substance: INFLIXIMAB
     Route: 041
     Dates: start: 20211021, end: 20211021
  8. INFLIXIMAB [Suspect]
     Active Substance: INFLIXIMAB
     Route: 041
     Dates: start: 20221102, end: 20221102
  9. INFLIXIMAB [Suspect]
     Active Substance: INFLIXIMAB
     Route: 041
     Dates: start: 20231207, end: 20231207
  10. AZATHIOPRINE [Concomitant]
     Active Substance: AZATHIOPRINE
     Indication: Colitis ulcerative
     Route: 048
     Dates: start: 20170215
  11. AZATHIOPRINE [Concomitant]
     Active Substance: AZATHIOPRINE
     Route: 048
     Dates: start: 20210407, end: 20210721
  12. AZATHIOPRINE [Concomitant]
     Active Substance: AZATHIOPRINE
     Route: 048
     Dates: start: 20210729
  13. BUDESONIDE [Concomitant]
     Active Substance: BUDESONIDE
     Indication: Colitis ulcerative
     Route: 054
     Dates: start: 20190409, end: 20190603
  14. BUDESONIDE [Concomitant]
     Active Substance: BUDESONIDE
     Route: 054
     Dates: start: 20210315, end: 20210406
  15. BUDESONIDE [Concomitant]
     Active Substance: BUDESONIDE
     Route: 054
     Dates: start: 20210519, end: 20210701
  16. MERCAPTOPURINE [Concomitant]
     Active Substance: MERCAPTOPURINE
     Route: 048
  17. MESALAMINE [Concomitant]
     Active Substance: MESALAMINE
     Indication: Colitis ulcerative
     Route: 048
     Dates: start: 2005
  18. MESALAMINE [Concomitant]
     Active Substance: MESALAMINE
     Route: 054
     Dates: start: 201406
  19. MESALAMINE [Concomitant]
     Active Substance: MESALAMINE
     Route: 065
  20. MESALAMINE [Concomitant]
     Active Substance: MESALAMINE
     Route: 048
     Dates: start: 20170309, end: 20180327
  21. MESALAMINE [Concomitant]
     Active Substance: MESALAMINE
     Route: 048
     Dates: start: 20180523, end: 20190408
  22. MESALAMINE [Concomitant]
     Active Substance: MESALAMINE
     Route: 048
     Dates: start: 20190409
  23. MESALAMINE [Concomitant]
     Active Substance: MESALAMINE
     Route: 054
     Dates: start: 20210519, end: 2021
  24. PREDNISOLONE [Concomitant]
     Active Substance: PREDNISOLONE
     Route: 048
     Dates: start: 1997

REACTIONS (15)
  - Rectal polyp [Recovered/Resolved]
  - Cytopenia [Recovered/Resolved]
  - Angular cheilitis [Unknown]
  - Purpura [Recovered/Resolved]
  - Ocular hyperaemia [Recovered/Resolved]
  - Rash [Recovered/Resolved]
  - Nasopharyngitis [Recovered/Resolved]
  - Herpes zoster [Recovered/Resolved]
  - Nasopharyngitis [Recovered/Resolved]
  - Vomiting [Recovered/Resolved]
  - Cheilitis [Unknown]
  - Headache [Recovered/Resolved]
  - Underdose [Unknown]
  - Overdose [Unknown]
  - Product use issue [Unknown]

NARRATIVE: CASE EVENT DATE: 20191125
